FAERS Safety Report 9173743 (Version 1)
Quarter: 2013Q1

REPORT INFORMATION
  Report Type: Spontaneous
  Country: RS (occurrence: None)
  Receive Date: 20130318
  Receipt Date: 20130318
  Transmission Date: 20140127
  Serious: Yes (Hospitalization, Other)
  Sender: FDA-Public Use
  Company Number: 2013-03772

PATIENT
  Age: 28 Year
  Sex: Female

DRUGS (1)
  1. PROPYLTHIOURACIL (AELLC) (PROPYLTHIOURACIL) UNKNOWN, UNKUNK [Suspect]
     Dosage: 600 MG, DAILY

REACTIONS (12)
  - Anti-neutrophil cytoplasmic antibody positive vasculitis [None]
  - Drug interaction [None]
  - Cough [None]
  - Pyrexia [None]
  - Weight decreased [None]
  - Fatigue [None]
  - Hyperhidrosis [None]
  - Drug ineffective [None]
  - Tachycardia [None]
  - Anaemia [None]
  - Leukopenia [None]
  - Lymphopenia [None]
